FAERS Safety Report 9186161 (Version 1)
Quarter: 2013Q1

REPORT INFORMATION
  Report Type: Spontaneous
  Country: CA (occurrence: CA)
  Receive Date: 20130325
  Receipt Date: 20130325
  Transmission Date: 20140127
  Serious: Yes (Hospitalization)
  Sender: FDA-Public Use
  Company Number: CA-GLAXOSMITHKLINE-A1015852A

PATIENT
  Sex: Male

DRUGS (12)
  1. VOTRIENT [Suspect]
     Indication: SARCOMA
     Dosage: 800MG PER DAY
     Route: 048
     Dates: start: 20130128
  2. ATENOLOL [Concomitant]
  3. AMLODIPINE [Concomitant]
  4. FENTANYL [Concomitant]
  5. HYDROMORPHONE [Concomitant]
  6. NORTRIPTYLINE [Concomitant]
  7. DEXAMETHASONE [Concomitant]
  8. RABEPRAZOLE [Concomitant]
  9. SENOKOT [Concomitant]
  10. LORAZEPAM [Concomitant]
  11. ZOPICLONE [Concomitant]
  12. SLOW K [Concomitant]

REACTIONS (4)
  - Hospitalisation [Not Recovered/Not Resolved]
  - Lethargy [Unknown]
  - Pain [Unknown]
  - Dyspnoea [Unknown]
